FAERS Safety Report 9117271 (Version 1)
Quarter: 2013Q1

REPORT INFORMATION
  Report Type: Spontaneous
  Country: US (occurrence: US)
  Receive Date: 20130225
  Receipt Date: 20130225
  Transmission Date: 20140127
  Serious: Yes (Hospitalization)
  Sender: FDA-Public Use
  Company Number: US-JNJFOC-20130212457

PATIENT
  Age: 70 Year
  Sex: Female
  Weight: 72.6 kg

DRUGS (15)
  1. XARELTO [Suspect]
     Indication: THROMBOSIS PROPHYLAXIS
     Route: 048
     Dates: start: 20120808, end: 20120811
  2. TRAMADOL [Concomitant]
     Indication: PAIN
     Dosage: AS NECESSARY
     Route: 048
     Dates: start: 20120807, end: 20120811
  3. COLACE [Concomitant]
     Indication: CONSTIPATION
     Route: 048
     Dates: start: 20120807, end: 20120811
  4. SODIUM CHLORIDE INFUSION [Concomitant]
     Indication: HYPONATRAEMIA
     Dosage: 0.9 %, 75 ML/HR
     Route: 042
     Dates: start: 20120808, end: 20120809
  5. SODIUM CHLORIDE INFUSION [Concomitant]
     Indication: FLUID REPLACEMENT
     Dosage: 0.9 %, 75 ML/HR
     Route: 042
     Dates: start: 20120808, end: 20120809
  6. XANAX [Concomitant]
     Indication: SLEEP DISORDER
     Dosage: AS NECESSARY DURING NIGHT
     Route: 065
     Dates: start: 20120807, end: 20120810
  7. XANAX [Concomitant]
     Indication: ANXIETY
     Dosage: AS NECESSARY DURING NIGHT
     Route: 065
     Dates: start: 20120807, end: 20120810
  8. DILAUDID [Concomitant]
     Indication: PAIN
     Route: 048
     Dates: start: 20120807, end: 20120811
  9. CLARITIN [Concomitant]
     Indication: MULTIPLE ALLERGIES
     Route: 048
     Dates: start: 20120807, end: 20120811
  10. MAGNESIUM SULFATE [Concomitant]
     Indication: HYPOMAGNESAEMIA
     Dosage: 2 GM IN DSW 100 ML
     Route: 042
     Dates: start: 20120808, end: 20120808
  11. LOPRESSOR [Concomitant]
     Indication: HYPERTENSION
     Route: 048
     Dates: start: 20120808, end: 20120811
  12. POTASSIUM CHLORIDE [Concomitant]
     Indication: HYPOKALAEMIA
     Route: 048
     Dates: start: 20120808, end: 20120809
  13. ZOFRAN [Concomitant]
     Indication: NAUSEA
     Dosage: AS NECESSARY
     Route: 042
     Dates: start: 20120807, end: 20120811
  14. SIMVASTATIN [Concomitant]
     Indication: BLOOD CHOLESTEROL INCREASED
     Route: 048
     Dates: start: 20120807, end: 20120811
  15. AVELOX [Concomitant]
     Indication: BACTERIAL INFECTION
     Route: 048
     Dates: start: 20120810, end: 20120811

REACTIONS (2)
  - Pulmonary embolism [Recovered/Resolved]
  - Drug ineffective [Unknown]
